FAERS Safety Report 12821544 (Version 1)
Quarter: 2016Q4

REPORT INFORMATION
  Report Type: Spontaneous
  Country: US (occurrence: US)
  Receive Date: 20161007
  Receipt Date: 20161007
  Transmission Date: 20170207
  Serious: Yes (Hospitalization)
  Sender: FDA-Public Use
  Company Number: US-AUROBINDO-AUR-APL-2016-11554

PATIENT
  Age: 30 Year
  Sex: Male

DRUGS (1)
  1. TRIMETHOPRIM+SULFAMETHOXAZOLE [Suspect]
     Active Substance: SULFAMETHOXAZOLE\TRIMETHOPRIM
     Indication: CELLULITIS
     Dosage: UNK
     Route: 065

REACTIONS (6)
  - Rash generalised [Recovering/Resolving]
  - Pain [Recovering/Resolving]
  - Fixed drug eruption [Recovering/Resolving]
  - Pruritus [Recovering/Resolving]
  - Skin plaque [Recovering/Resolving]
  - Erythema [Recovering/Resolving]
